FAERS Safety Report 5835157-9 (Version None)
Quarter: 2008Q3

REPORT INFORMATION
  Report Type: 
  Country: None (occurrence: None)
  Receive Date: 20080724
  Receipt Date: 20080130
  Transmission Date: 20090109
  Serious: No
  Sender: FDA-Public Use
  Company Number: 08H-163-0313804-00

PATIENT
  Age: 22 Year
  Sex: Male

DRUGS (1)
  1. HYDROMORPHONE HCL INJECTION (HYDROMORPHONE HYDROCHLORIDE INJECTION) [Suspect]
     Indication: DRUG USE FOR UNKNOWN INDICATION
     Dosage: 0.2 MG/HR, CONTINUOUS, INTRAVENOUS
     Route: 042

REACTIONS (2)
  - MEDICATION ERROR [None]
  - UNRESPONSIVE TO STIMULI [None]
